FAERS Safety Report 4360703-4 (Version None)
Quarter: 2004Q2

REPORT INFORMATION
  Report Type: 
  Country: None (occurrence: None)
  Receive Date: 20040514
  Receipt Date: 20040506
  Transmission Date: 20050107
  Serious: Yes (Death)
  Sender: FDA-Public Use
  Company Number: MK200209-0125-1

PATIENT
  Age: 55 Year
  Sex: Male

DRUGS (1)
  1. OPTIRAY 300 [Suspect]
     Indication: UROGRAPHY
     Dosage: 50 ML, SINGLE USE
     Dates: start: 20020909, end: 20020909

REACTIONS (11)
  - AKATHISIA [None]
  - ANAPHYLACTIC REACTION [None]
  - CARDIAC ARREST [None]
  - CONTRAST MEDIA REACTION [None]
  - COUGH [None]
  - LOSS OF CONSCIOUSNESS [None]
  - NAUSEA [None]
  - SHOCK [None]
  - URINARY INCONTINENCE [None]
  - VENTRICULAR FIBRILLATION [None]
  - VOMITING [None]
